FAERS Safety Report 6969229-2 (Version None)
Quarter: 2010Q3

REPORT INFORMATION
  Report Type: 
  Country: None (occurrence: None)
  Receive Date: 20100907
  Receipt Date: 20100902
  Transmission Date: 20110219
  Serious: Yes (Hospitalization)
  Sender: FDA-Public Use
  Company Number: GE-NOVOPROD-311501

PATIENT
  Sex: Male
  Weight: 3.2 kg

DRUGS (5)
  1. NOVORAPID [Suspect]
     Indication: TYPE 1 DIABETES MELLITUS
     Dosage: 28 IU, QD
     Route: 064
     Dates: start: 20081128, end: 20091020
  2. INSULATARD [Suspect]
     Indication: TYPE 1 DIABETES MELLITUS
     Dosage: 18 IU, QD
     Route: 064
     Dates: start: 20081128, end: 20091020
  3. MAGNE B6                           /00869101/ [Concomitant]
     Dosage: UNK
     Route: 064
     Dates: start: 20081128, end: 20091020
  4. FERRO FOLGAMMA [Concomitant]
     Dosage: UNK
     Route: 064
     Dates: start: 20090218, end: 20091020
  5. POTASSIUM IODIDE [Concomitant]
     Dosage: UNK
     Route: 064
     Dates: start: 20090218, end: 20090418

REACTIONS (2)
  - MATERNAL DRUGS AFFECTING FOETUS [None]
  - NEONATAL RESPIRATORY DISTRESS SYNDROME [None]
